FAERS Safety Report 7559931-6 (Version None)
Quarter: 2011Q2

REPORT INFORMATION
  Report Type: 
  Country: None (occurrence: None)
  Receive Date: 20110621
  Receipt Date: 20110607
  Transmission Date: 20111010
  Serious: Yes (Hospitalization)
  Sender: FDA-Public Use
  Company Number: PHHY2011TR41244

PATIENT
  Age: 56 Year
  Sex: Female

DRUGS (2)
  1. ZOLEDRONIC ACID [Suspect]
     Indication: OSTEOPOROSIS
     Dosage: 5 MG/100 ML
     Route: 042
     Dates: start: 20110507
  2. ANALGESICS [Concomitant]

REACTIONS (5)
  - FATIGUE [None]
  - MYALGIA [None]
  - BLOOD UREA INCREASED [None]
  - PYREXIA [None]
  - TACHYCARDIA [None]
